FAERS Safety Report 13114834 (Version 1)
Quarter: 2017Q1

REPORT INFORMATION
  Report Type: Other
  Country: US (occurrence: TR)
  Receive Date: 20170113
  Receipt Date: 20170113
  Transmission Date: 20170428
  Serious: Yes (Hospitalization)
  Sender: FDA-Public Use
  Company Number: TR-BRECKENRIDGE PHARMACEUTICAL, INC.-1062007

PATIENT
  Age: 12 Year
  Sex: Female

DRUGS (1)
  1. CETIRIZINE [Suspect]
     Active Substance: CETIRIZINE HYDROCHLORIDE

REACTIONS (1)
  - Acute generalised exanthematous pustulosis [Recovered/Resolved]
